FAERS Safety Report 6126574-0 (Version None)
Quarter: 2009Q1

REPORT INFORMATION
  Report Type: 
  Country: None (occurrence: None)
  Receive Date: 20090320
  Receipt Date: 20090311
  Transmission Date: 20090719
  Serious: Yes (Hospitalization)
  Sender: FDA-Public Use
  Company Number: US-PFIZER INC-2008091723

PATIENT
  Sex: Male
  Weight: 111 kg

DRUGS (13)
  1. SUNITINIB MALATE [Suspect]
     Indication: GASTROINTESTINAL STROMAL TUMOUR
     Dosage: 37.5 MG, 1X/DAY
     Route: 048
     Dates: start: 20080710, end: 20081004
  2. IMATINIB MESILATE [Suspect]
     Indication: GASTROINTESTINAL STROMAL TUMOUR
     Dosage: 200 MG, 1X/DAY
     Route: 048
     Dates: start: 20080724, end: 20081002
  3. NEUTRA-PHOS [Concomitant]
     Dosage: 250, 2X/DAY, PRN
     Route: 048
     Dates: start: 20081002
  4. K-DUR [Concomitant]
     Dosage: 40 MEQ, 1X/DAY
     Route: 048
     Dates: start: 20081002
  5. ZOFRAN [Concomitant]
     Dosage: 8 MG, AS NEEDED, Q8HRS
     Route: 048
     Dates: start: 20080904
  6. COMPAZINE [Concomitant]
     Dosage: 10 MG, AS NEEDED,  Q6HRS
     Route: 048
     Dates: start: 20080828
  7. PROMETHAZINE HYDROCHLORIDE [Concomitant]
     Dosage: 25 MG, AS NEEDED,  Q 4-6HRS
     Route: 048
     Dates: start: 20080821
  8. OXYCODONE [Concomitant]
     Dosage: 5 MG, EVERY 4 HRS, PRN
     Route: 048
     Dates: start: 20080710
  9. HYDROCHLOROTHIAZIDE [Concomitant]
     Dosage: 25 MG, 1X/DAY
     Route: 048
     Dates: start: 20080630
  10. LISINOPRIL [Concomitant]
     Dosage: 40 MG, 1X/DAY
     Route: 048
     Dates: start: 20080630
  11. CLONIDINE [Concomitant]
     Dosage: 0.2 MG, 2X/DAY
     Route: 048
     Dates: start: 20080609
  12. LOVENOX [Concomitant]
     Dosage: 120 MG, 2X/DAY
     Route: 058
     Dates: start: 20080929
  13. OXYCONTIN [Concomitant]
     Dosage: 20 MG, 3X/DAY
     Route: 048
     Dates: start: 20080929

REACTIONS (1)
  - INGROWING NAIL [None]
